FAERS Safety Report 23075065 (Version 1)
Quarter: 2023Q4

REPORT INFORMATION
  Report Type: Spontaneous
  Country: US (occurrence: US)
  Receive Date: 20231017
  Receipt Date: 20231017
  Transmission Date: 20240109
  Serious: No
  Sender: FDA-Public Use
  Company Number: US-MIRATI-MT2023PM04625

PATIENT

DRUGS (5)
  1. KRAZATI [Suspect]
     Active Substance: ADAGRASIB
     Indication: Colon cancer
     Dosage: 600 MG, BID
     Route: 048
     Dates: start: 20230419
  2. KRAZATI [Suspect]
     Active Substance: ADAGRASIB
     Dosage: 600 MG, BID (THREE TABLETS TWICE DAILY)
     Route: 048
     Dates: start: 20221117
  3. OPDIVO [Concomitant]
     Active Substance: NIVOLUMAB
  4. YERVOY [Concomitant]
     Active Substance: IPILIMUMAB
  5. XGEVA [Concomitant]
     Active Substance: DENOSUMAB

REACTIONS (3)
  - Diarrhoea [Not Recovered/Not Resolved]
  - Diarrhoea [Not Recovered/Not Resolved]
  - Off label use [Unknown]

NARRATIVE: CASE EVENT DATE: 20230101
